FAERS Safety Report 5942615-5 (Version None)
Quarter: 2008Q4

REPORT INFORMATION
  Report Type: 
  Country: None (occurrence: None)
  Receive Date: 20081103
  Receipt Date: 20081022
  Transmission Date: 20090506
  Serious: Yes (Other)
  Sender: FDA-Public Use
  Company Number: 8029084

PATIENT
  Age: 10 Year
  Sex: Male

DRUGS (5)
  1. KEPPRA [Suspect]
     Indication: PARTIAL SEIZURES
     Dosage: PO
     Route: 048
     Dates: start: 20071025, end: 20071101
  2. KEPPRA [Suspect]
     Indication: PARTIAL SEIZURES
     Dosage: IV
     Route: 042
     Dates: start: 20071105, end: 20071109
  3. KEPPRA [Suspect]
     Indication: PARTIAL SEIZURES
     Dosage: 600 MG 2/D PO
     Route: 048
     Dates: start: 20071110
  4. KEPPRA [Suspect]
     Indication: PARTIAL SEIZURES
     Dosage: 600 MG 2/D PO
     Route: 048
     Dates: start: 20071110
  5. TEGRETOL [Concomitant]

REACTIONS (3)
  - BONE MARROW FAILURE [None]
  - LEUKAEMIA RECURRENT [None]
  - TERMINAL STATE [None]
